FAERS Safety Report 8124638-3 (Version None)
Quarter: 2012Q1

REPORT INFORMATION
  Report Type: 
  Country: None (occurrence: None)
  Receive Date: 20120209
  Receipt Date: 20120209
  Transmission Date: 20120608
  Serious: Yes (Life-Threatening, Hospitalization)
  Sender: FDA-Public Use
  Company Number: None

PATIENT
  Sex: Male
  Weight: 101.8 kg

DRUGS (2)
  1. LIDOCAINE [Concomitant]
     Indication: APPLICATION SITE ANAESTHESIA
     Dosage: 1 APPLICATION
     Route: 061
     Dates: start: 20111104, end: 20111104
  2. BENZ-O-STHETIC SPRAY [Suspect]
     Indication: APPLICATION SITE ANAESTHESIA
     Dosage: 1 SPRAY
     Route: 061
     Dates: start: 20111104, end: 20111104

REACTIONS (2)
  - OXYGEN CONSUMPTION INCREASED [None]
  - BLOOD METHAEMOGLOBIN PRESENT [None]
